FAERS Safety Report 16985313 (Version 6)
Quarter: 2019Q4

REPORT INFORMATION
  Report Type: Spontaneous
  Country: GB (occurrence: GB)
  Receive Date: 20191101
  Receipt Date: 20191120
  Transmission Date: 20200122
  Serious: Yes (Death, Other)
  Sender: FDA-Public Use
  Company Number: GB-PFIZER INC-2019467253

PATIENT
  Age: 75 Year
  Sex: Female

DRUGS (11)
  1. AMIODARONE HCL [Suspect]
     Active Substance: AMIODARONE HYDROCHLORIDE
     Indication: ATRIAL FIBRILLATION
     Dosage: UNK
  2. BISOPROLOL [Concomitant]
     Active Substance: BISOPROLOL
     Dosage: 3.75 UNK, UNK
  3. PREGABALIN. [Concomitant]
     Active Substance: PREGABALIN
     Indication: NEURALGIA
     Dosage: 75 MG, UNK
  4. SALBUTAMOL [Concomitant]
     Active Substance: ALBUTEROL
     Indication: PROPHYLAXIS
     Dosage: UNK
  5. AMOXICILLIN. [Concomitant]
     Active Substance: AMOXICILLIN
     Indication: LOWER RESPIRATORY TRACT INFECTION
     Dosage: UNK
  6. LANSOPRAZOLE. [Concomitant]
     Active Substance: LANSOPRAZOLE
     Indication: PROPHYLAXIS
     Dosage: 30 MG, UNK
  7. CRIZOTINIB [Suspect]
     Active Substance: CRIZOTINIB
     Indication: CHEMOTHERAPY
     Dosage: UNK
     Dates: start: 201709
  8. DALTEPARIN SODIUM [Suspect]
     Active Substance: DALTEPARIN SODIUM
     Indication: ATRIAL FIBRILLATION
     Dosage: 15000 IU, UNK
     Dates: start: 201709
  9. COCODAMOL [Concomitant]
     Active Substance: ACETAMINOPHEN\CODEINE PHOSPHATE
     Indication: ANALGESIC THERAPY
     Dosage: UNK
  10. APIXABAN [Suspect]
     Active Substance: APIXABAN
     Dosage: UNK
     Route: 048
     Dates: start: 2018
  11. BISOPROLOL [Concomitant]
     Active Substance: BISOPROLOL
     Indication: HYPERTENSION
     Dosage: 2.5 MG, UNK

REACTIONS (7)
  - Condition aggravated [Fatal]
  - Haematochezia [Unknown]
  - Vomiting [Unknown]
  - Medication error [Unknown]
  - Melaena [Unknown]
  - Blood urine present [Unknown]
  - Haemoptysis [Unknown]

NARRATIVE: CASE EVENT DATE: 201803
